FAERS Safety Report 10373218 (Version 2)
Quarter: 2014Q3

REPORT INFORMATION
  Report Type: Spontaneous
  Country: US (occurrence: US)
  Receive Date: 20140808
  Receipt Date: 20140808
  Transmission Date: 20150326
  Serious: No
  Sender: FDA-Public Use
  Company Number: US-BRISTOL-MYERS SQUIBB COMPANY-20212973

PATIENT
  Age: 49 Year
  Sex: Female

DRUGS (24)
  1. FLUOXETINE [Concomitant]
     Active Substance: FLUOXETINE\FLUOXETINE HYDROCHLORIDE
  2. NEXIUM [Concomitant]
     Active Substance: ESOMEPRAZOLE MAGNESIUM
  3. LYRICA [Concomitant]
     Active Substance: PREGABALIN
  4. TRICOR [Concomitant]
     Active Substance: FENOFIBRATE
  5. GLIPIZIDE. [Concomitant]
     Active Substance: GLIPIZIDE
  6. TOPIRAMATE. [Concomitant]
     Active Substance: TOPIRAMATE
  7. AMITRIPTYLINE [Concomitant]
     Active Substance: AMITRIPTYLINE
  8. FOLIC ACID. [Concomitant]
     Active Substance: FOLIC ACID
  9. POLYETHYLENE GLYCOL [Concomitant]
     Active Substance: POLYETHYLENE GLYCOLS
  10. CLARITIN [Concomitant]
     Active Substance: LORATADINE
  11. SIMVASTATIN. [Concomitant]
     Active Substance: SIMVASTATIN
  12. PROMETHAZINE [Concomitant]
     Active Substance: PROMETHAZINE\PROMETHAZINE HYDROCHLORIDE
  13. BENADRYL [Concomitant]
     Active Substance: DIPHENHYDRAMINE HYDROCHLORIDE
  14. AMLODIPINE [Concomitant]
     Active Substance: AMLODIPINE BESYLATE
  15. ONDANSETRON [Concomitant]
     Active Substance: ONDANSETRON
  16. ALBUTEROL. [Concomitant]
     Active Substance: ALBUTEROL
  17. FUROSEMIDE. [Concomitant]
     Active Substance: FUROSEMIDE
  18. PHENYTOIN. [Concomitant]
     Active Substance: PHENYTOIN
  19. SPRYCEL [Suspect]
     Active Substance: DASATINIB
  20. BENZONATATE. [Concomitant]
     Active Substance: BENZONATATE
  21. MONTELUKAST [Concomitant]
     Active Substance: MONTELUKAST SODIUM
  22. POTASSIUM CHLORIDE. [Concomitant]
     Active Substance: POTASSIUM CHLORIDE
  23. ATENOLOL. [Concomitant]
     Active Substance: ATENOLOL
  24. EXFORGE [Concomitant]
     Active Substance: AMLODIPINE BESYLATE\VALSARTAN

REACTIONS (3)
  - Rash pruritic [Unknown]
  - Peripheral swelling [Unknown]
  - Alopecia [Unknown]
